FAERS Safety Report 5497210-1 (Version None)
Quarter: 2007Q4

REPORT INFORMATION
  Report Type: 
  Country: None (occurrence: None)
  Receive Date: 20071025
  Receipt Date: 20060911
  Transmission Date: 20080405
  Serious: No
  Sender: FDA-Public Use
  Company Number: A0619751A

PATIENT
  Age: 84 Year
  Sex: Female

DRUGS (2)
  1. ADVAIR DISKUS 100/50 [Suspect]
     Indication: CHRONIC OBSTRUCTIVE PULMONARY DISEASE
     Route: 055
     Dates: start: 20040101
  2. ARICEPT [Concomitant]

REACTIONS (2)
  - TONGUE DISORDER [None]
  - WEIGHT DECREASED [None]
